FAERS Safety Report 20792572 (Version 1)
Quarter: 2022Q2

REPORT INFORMATION
  Report Type: Spontaneous
  Country: US (occurrence: US)
  Receive Date: 20220506
  Receipt Date: 20220506
  Transmission Date: 20220720
  Serious: No
  Sender: FDA-Public Use
  Company Number: US-ALK-ABELLO A/S-2022AA001207

PATIENT

DRUGS (2)
  1. GRASTEK [Suspect]
     Active Substance: PHLEUM PRATENSE POLLEN
     Indication: Rhinitis allergic
     Dosage: UNK
     Route: 060
     Dates: start: 20220331, end: 20220409
  2. ODACTRA [Suspect]
     Active Substance: DERMATOPHAGOIDES FARINAE\DERMATOPHAGOIDES PTERONYSSINUS
     Indication: Mite allergy
     Dosage: UNK
     Route: 060
     Dates: start: 20220331, end: 20220409

REACTIONS (2)
  - Tongue pruritus [Unknown]
  - Rash [Unknown]
